FAERS Safety Report 26157487 (Version 1)
Quarter: 2025Q4

REPORT INFORMATION
  Report Type: Spontaneous
  Country: US (occurrence: None)
  Receive Date: 20251212
  Receipt Date: 20251212
  Transmission Date: 20260119
  Serious: Yes (Other)
  Sender: FDA-CTU
  Company Number: None

PATIENT
  Sex: Female

DRUGS (11)
  1. KISQALI [Suspect]
     Active Substance: RIBOCICLIB SUCCINATE
     Indication: Breast cancer female
     Dosage: FREQUENCY : AS NEEDED;
     Route: 048
     Dates: start: 20251212
  2. ALBUTEROL SULFATE [Concomitant]
     Active Substance: ALBUTEROL SULFATE
  3. ANASTROZOLE [Concomitant]
     Active Substance: ANASTROZOLE
  4. ANUCORT-HC [Concomitant]
     Active Substance: HYDROCORTISONE ACETATE
  5. BISACODYL [Concomitant]
     Active Substance: BISACODYL
  6. CETIRIZINE HCL [Concomitant]
     Active Substance: CETIRIZINE HYDROCHLORIDE
  7. CICLOPIROX [Concomitant]
     Active Substance: CICLOPIROX
  8. CYCLOBENZAPRINE HYDROCHLORIDE [Concomitant]
     Active Substance: CYCLOBENZAPRINE HYDROCHLORIDE
  9. DICLOFENAC [Concomitant]
     Active Substance: DICLOFENAC
  10. ESCITALOPRAM [Concomitant]
     Active Substance: ESCITALOPRAM OXALATE
  11. FAMOTIDINE [Concomitant]
     Active Substance: FAMOTIDINE

REACTIONS (1)
  - Neoplasm malignant [None]
